FAERS Safety Report 6765720-2 (Version None)
Quarter: 2010Q2

REPORT INFORMATION
  Report Type: 
  Country: None (occurrence: None)
  Receive Date: 20100610
  Receipt Date: 20100610
  Transmission Date: 20101027
  Serious: No
  Sender: FDA-Public Use
  Company Number: None

PATIENT
  Sex: Female
  Weight: 50.3493 kg

DRUGS (3)
  1. COMBIVIR [Suspect]
     Indication: HIV INFECTION
     Dosage: COMBIVIR 2
     Dates: start: 20050101
  2. ADVAIR DISKUS 500/50 [Suspect]
     Indication: ASTHMA
  3. ADVAIR DISKUS 500/50 [Suspect]
     Indication: CHRONIC OBSTRUCTIVE PULMONARY DISEASE

REACTIONS (2)
  - APPARENT LIFE THREATENING EVENT [None]
  - THROAT TIGHTNESS [None]
